FAERS Safety Report 13689976 (Version 3)
Quarter: 2017Q3

REPORT INFORMATION
  Report Type: Spontaneous
  Country: JP (occurrence: JP)
  Receive Date: 20170626
  Receipt Date: 20170901
  Transmission Date: 20171127
  Serious: Yes (Life-Threatening, Hospitalization)
  Sender: FDA-Public Use
  Company Number: JP-PFIZER INC-2017273464

PATIENT
  Age: 80 Year
  Sex: Male

DRUGS (4)
  1. EFFEXOR [Suspect]
     Active Substance: VENLAFAXINE HYDROCHLORIDE
     Dosage: 75 MG, DAILY
     Route: 048
     Dates: start: 20170614
  2. SULPIRIDE [Suspect]
     Active Substance: SULPIRIDE
     Dosage: 100 MG, DAILY
     Dates: start: 20170615, end: 20170622
  3. EFFEXOR [Suspect]
     Active Substance: VENLAFAXINE HYDROCHLORIDE
     Dosage: 37.5 MG, DAILY
     Route: 048
     Dates: start: 20170607, end: 20170613
  4. SULPIRIDE [Suspect]
     Active Substance: SULPIRIDE
     Dosage: 150 MG, DAILY
     Dates: start: 20170610, end: 20170614

REACTIONS (4)
  - Condition aggravated [Unknown]
  - Depression [Unknown]
  - Anxiety [Recovered/Resolved]
  - Decreased appetite [Unknown]

NARRATIVE: CASE EVENT DATE: 20170610
